FAERS Safety Report 23700777 (Version 4)
Quarter: 2024Q4

REPORT INFORMATION
  Report Type: Spontaneous
  Country: JP (occurrence: JP)
  Receive Date: 20240403
  Receipt Date: 20241107
  Transmission Date: 20250115
  Serious: Yes (Death, Life-Threatening, Other)
  Sender: VERICEL
  Company Number: JP-VERICEL-JP-VCEL-24-000065

PATIENT
  Age: 87 Year
  Sex: Male
  Weight: 47.9 kg

DRUGS (17)
  1. BROMELAINS [Suspect]
     Active Substance: BROMELAINS
     Indication: Burns third degree
     Dosage: 15 GRAM, QD
     Route: 061
     Dates: start: 20240213, end: 20240213
  2. KETALAR [Concomitant]
     Active Substance: KETAMINE HYDROCHLORIDE
     Indication: Analgesic therapy
     Dosage: UNK
     Route: 041
     Dates: start: 20240128
  3. LASIX [Concomitant]
     Active Substance: FUROSEMIDE
     Indication: Polyuria
     Dosage: 20 MILLIGRAM, QD
     Route: 041
     Dates: start: 20240201, end: 20240213
  4. RAMELTEON [Concomitant]
     Active Substance: RAMELTEON
     Indication: Insomnia
     Dosage: 8 MILLIGRAM, QD
     Route: 048
     Dates: start: 20240127
  5. LANSOPRAZOLE [Concomitant]
     Active Substance: LANSOPRAZOLE
     Indication: Gastritis
     Dosage: 30 MILLIGRAM, QD
     Route: 048
     Dates: start: 20240127
  6. AMLODIPINE AUROBINDO [AMLODIPINE BESILATE] [Concomitant]
     Indication: Hypertension
     Dosage: 5 MILLIGRAM, QD
     Route: 048
     Dates: start: 20240127, end: 20240217
  7. DAYVIGO [Concomitant]
     Active Substance: LEMBOREXANT
     Indication: Insomnia
     Dosage: 5 MILLIGRAM, QD
     Route: 048
     Dates: start: 20240127
  8. CALONAL [Concomitant]
     Active Substance: ACETAMINOPHEN
     Indication: Analgesic therapy
     Dosage: 500 MILLIGRAM, QID
     Route: 048
     Dates: start: 20240127
  9. CELECOXIB [Concomitant]
     Active Substance: CELECOXIB
     Indication: Analgesic therapy
     Dosage: 200 MILLIGRAM, BID
     Route: 048
     Dates: start: 20240127
  10. POLAPREZINC [Concomitant]
     Active Substance: POLAPREZINC
     Indication: Gastritis
     Dosage: 75 MILLIGRAM, BID
     Route: 048
     Dates: start: 20240127
  11. TRAMADOL [Concomitant]
     Active Substance: TRAMADOL
     Indication: Analgesic therapy
     Dosage: 25 MILLIGRAM, QID
     Route: 048
     Dates: start: 20240127
  12. MIYA-BM [Concomitant]
     Active Substance: CLOSTRIDIUM BUTYRICUM SPORES STRAIN M-55
     Indication: Diarrhoea
     Dosage: 1 MILLIGRAM, TID
     Route: 048
     Dates: start: 20240127
  13. ZOSYN [Concomitant]
     Active Substance: PIPERACILLIN SODIUM\TAZOBACTAM SODIUM
     Indication: Localised infection
     Dosage: 2.25 MILLIGRAM, QID
     Route: 041
     Dates: start: 20240211, end: 20240215
  14. ALBUMIN HUMAN [Concomitant]
     Active Substance: ALBUMIN HUMAN
     Indication: Hypoalbuminaemia
     Dosage: 20 GRAM, QD
     Route: 041
     Dates: start: 20240207, end: 20240213
  15. CINAL [ASCORBIC ACID;CALCIUM PANTOTHENATE] [Concomitant]
     Indication: Vitamin supplementation
     Dosage: 1 GRAM, TID
     Route: 048
     Dates: start: 20240127
  16. FENTANYL CITRATE [Concomitant]
     Active Substance: FENTANYL CITRATE
     Indication: Analgesic therapy
     Dosage: UNK
     Route: 041
     Dates: start: 20240213, end: 20240213
  17. MIDAZOLAM [Concomitant]
     Active Substance: MIDAZOLAM
     Indication: Analgesic therapy
     Dosage: UNK
     Route: 030
     Dates: start: 20240213, end: 20240213

REACTIONS (4)
  - Renal impairment [Not Recovered/Not Resolved]
  - Death [Fatal]
  - Shock haemorrhagic [Recovered/Resolved with Sequelae]
  - Wrong technique in product usage process [Unknown]

NARRATIVE: CASE EVENT DATE: 20240213
